FAERS Safety Report 9621204 (Version 4)
Quarter: 2014Q2

REPORT INFORMATION
  Report Type: Spontaneous
  Country: DE (occurrence: DE)
  Receive Date: 20131015
  Receipt Date: 20140521
  Transmission Date: 20141212
  Serious: Yes (Hospitalization)
  Sender: FDA-Public Use
  Company Number: DE-JNJFOC-20131005286

PATIENT
  Age: 71 Year
  Sex: Male
  Weight: 96 kg

DRUGS (2)
  1. XARELTO [Suspect]
     Indication: PULMONARY HYPERTENSION
     Route: 048
     Dates: start: 20130911, end: 20130919
  2. TRACLEER [Concomitant]
     Indication: PULMONARY HYPERTENSION
     Route: 048
     Dates: start: 20120223

REACTIONS (1)
  - Thrombocytopenia [Recovered/Resolved]
